FAERS Safety Report 24091077 (Version 1)
Quarter: 2024Q3

REPORT INFORMATION
  Report Type: Report from Study
  Country: AT (occurrence: AT)
  Receive Date: 20240715
  Receipt Date: 20240715
  Transmission Date: 20241017
  Serious: Yes (Hospitalization)
  Sender: ABBVIE
  Company Number: AT-ABBVIE-5836604

PATIENT
  Age: 74 Year
  Sex: Male

DRUGS (2)
  1. CARBIDOPA\LEVODOPA [Suspect]
     Active Substance: CARBIDOPA\LEVODOPA
     Indication: Parkinson^s disease
     Dosage: MD 7.0 ML; CR DAY-TIME 6.8 ML/H; CR NIGHT-TIME 4.5 ML/H; ED 3 ML
     Route: 050
     Dates: start: 20200922, end: 20240708
  2. CARBIDOPA\LEVODOPA [Suspect]
     Active Substance: CARBIDOPA\LEVODOPA
     Dosage: MD 7.0 ML; CR DAY-TIME 6.8 ML/H; CR NIGHT-TIME 4.5 ML/H; ED 3 ML
     Route: 050
     Dates: start: 202407

REACTIONS (2)
  - Incorrect route of product administration [Unknown]
  - Device dislocation [Recovered/Resolved]

NARRATIVE: CASE EVENT DATE: 20240701
